FAERS Safety Report 10572786 (Version 1)
Quarter: 2014Q4

REPORT INFORMATION
  Report Type: Spontaneous
  Country: GB (occurrence: GB)
  Receive Date: 20141110
  Receipt Date: 20141110
  Transmission Date: 20150529
  Serious: Yes (Death, Hospitalization, Disabling)
  Sender: FDA-Public Use
  Company Number: GB-MERCK-1411GBR003622

PATIENT
  Sex: Female

DRUGS (1)
  1. DEXAMETHASONE TABLETS BP 500MCG [Suspect]
     Active Substance: DEXAMETHASONE
     Indication: PRODUCT USED FOR UNKNOWN INDICATION
     Dosage: 32 MG DAILY (UNKNOWN , 1 IN 1D)
     Route: 065

REACTIONS (1)
  - Prescribed overdose [Fatal]
